FAERS Safety Report 25085970 (Version 3)
Quarter: 2025Q2

REPORT INFORMATION
  Report Type: Report from Study
  Country: US (occurrence: US)
  Receive Date: 20250317
  Receipt Date: 20250606
  Transmission Date: 20250716
  Serious: Yes (Hospitalization, Other)
  Sender: UCB
  Company Number: US-UCBSA-2025003876

PATIENT
  Age: 6 Year
  Sex: Female

DRUGS (11)
  1. FINTEPLA [Suspect]
     Active Substance: FENFLURAMINE
     Indication: Severe myoclonic epilepsy of infancy
     Dosage: 4 MILLILITER, 2X/DAY (BID)
     Dates: start: 20220310
  2. FINTEPLA [Suspect]
     Active Substance: FENFLURAMINE
     Dosage: 4 MILLILITER, 2X/DAY (BID)
  3. KEPPRA [Suspect]
     Active Substance: LEVETIRACETAM
     Indication: Product used for unknown indication
  4. EPIDIOLEX [Concomitant]
     Active Substance: CANNABIDIOL
     Dosage: 2.4 MILLILITER, 2X/DAY (BID)
     Route: 048
     Dates: start: 20241216
  5. ZYRTEC [Concomitant]
     Active Substance: CETIRIZINE HYDROCHLORIDE
     Indication: Product used for unknown indication
     Dosage: 6 MILLILITER, ONCE DAILY (QD)
     Route: 048
  6. ONFI [Concomitant]
     Active Substance: CLOBAZAM
     Indication: Product used for unknown indication
     Dosage: 6 MILLILITER, 2X/DAY (BID)
     Route: 048
     Dates: start: 20241216
  7. VALTOCO [Concomitant]
     Active Substance: DIAZEPAM
     Indication: Seizure
  8. FLONASE [Concomitant]
     Active Substance: FLUTICASONE PROPIONATE
     Indication: Product used for unknown indication
     Dates: start: 20241216
  9. ATARAX P [HYDROXYZINE HYDROCHLORIDE] [Concomitant]
     Indication: Product used for unknown indication
     Dosage: 6 MILLILITER, ONCE DAILY (QD)
     Route: 048
     Dates: start: 20230920
  10. MELATONIN [Concomitant]
     Active Substance: MELATONIN
     Indication: Product used for unknown indication
     Dosage: 5 MILLILITER, ONCE DAILY (QD)
     Dates: start: 20211119
  11. MIRALAX [Concomitant]
     Active Substance: POLYETHYLENE GLYCOL 3350
     Indication: Constipation

REACTIONS (10)
  - Seizure [Not Recovered/Not Resolved]
  - Seizure cluster [Not Recovered/Not Resolved]
  - Urinary tract infection [Not Recovered/Not Resolved]
  - Rhinovirus infection [Not Recovered/Not Resolved]
  - Pharyngitis streptococcal [Not Recovered/Not Resolved]
  - Constipation [Not Recovered/Not Resolved]
  - Aggression [Not Recovered/Not Resolved]
  - Pyrexia [Unknown]
  - Psychomotor hyperactivity [Unknown]
  - Respiratory syncytial virus infection [Unknown]

NARRATIVE: CASE EVENT DATE: 20241201
